FAERS Safety Report 9957811 (Version 1)
Quarter: 2014Q1

REPORT INFORMATION
  Report Type: Report from Study
  Country: US (occurrence: US)
  Receive Date: 20140304
  Receipt Date: 20140304
  Transmission Date: 20141002
  Serious: No
  Sender: FDA-Public Use
  Company Number: US-ABBVIE-13P-163-1093865-00

PATIENT
  Age: 22 Year
  Sex: Female

DRUGS (7)
  1. HUMIRA [Suspect]
     Indication: CROHN^S DISEASE
     Dates: start: 20130415
  2. LIALDA [Concomitant]
     Indication: COLITIS ULCERATIVE
  3. 6-MP [Concomitant]
     Indication: COLITIS
     Dosage: 25MG DAILY
  4. VALACYCLOVIR HCL PHARMA PAC [Concomitant]
     Indication: ANTIBIOTIC PROPHYLAXIS
     Dosage: 1 GM DAILY
  5. LO ESTRAN [Concomitant]
     Indication: CONTRACEPTION
     Dosage: 24 SE DAILY
  6. MULTIVITAMIN [Concomitant]
     Indication: VITAMIN SUPPLEMENTATION
     Dosage: DAILY
  7. CALCIUM [Concomitant]
     Indication: MINERAL SUPPLEMENTATION
     Dosage: 1200 MG DAILY

REACTIONS (1)
  - Injection site bruising [Recovered/Resolved]
